FAERS Safety Report 8369174-4 (Version None)
Quarter: 2012Q2

REPORT INFORMATION
  Report Type: 
  Country: None (occurrence: None)
  Receive Date: 20120518
  Receipt Date: 20120508
  Transmission Date: 20120825
  Serious: Yes (Other)
  Sender: FDA-Public Use
  Company Number: US-VERTEX PHARMACEUTICALS INC.-AE-2012-006713

PATIENT
  Sex: Male

DRUGS (4)
  1. RIBAVIRIN [Concomitant]
  2. RIBAVIRIN [Concomitant]
     Indication: HEPATITIS C
     Dates: start: 20111204
  3. INCIVEK [Suspect]
     Indication: HEPATITIS C
     Route: 048
     Dates: start: 20111204, end: 20120226
  4. PEGASYS [Concomitant]
     Indication: HEPATITIS C
     Dates: start: 20111204

REACTIONS (6)
  - ANAEMIA [None]
  - DEHYDRATION [None]
  - WHITE BLOOD CELL COUNT DECREASED [None]
  - ASTHENIA [None]
  - STAPHYLOCOCCAL INFECTION [None]
  - RASH PRURITIC [None]
